FAERS Safety Report 10678642 (Version 1)
Quarter: 2014Q4

REPORT INFORMATION
  Report Type: Spontaneous
  Country: CA (occurrence: None)
  Receive Date: 20141223
  Receipt Date: 20141223
  Transmission Date: 20150529
  Serious: Yes (Other)
  Sender: FDA-Public Use
  Company Number: INT_00566_2014

PATIENT
  Age: 60 Year
  Sex: Female

DRUGS (4)
  1. FLUOROURACIL (FLUOROURACIL) [Suspect]
     Active Substance: FLUOROURACIL
     Indication: RECTOSIGMOID CANCER
     Dosage: DF
  2. CISPLATIN (CISPLATIN) (HQ SPECIALTY) [Suspect]
     Active Substance: CISPLATIN
     Indication: RECTOSIGMOID CANCER
     Dosage: ON DAY 1, AT LEAST 3 CYCLES, NOT OTHERWISE SPECIFIED
     Route: 042
  3. LEUCOVORIN (LEUCOVORIN) [Suspect]
     Active Substance: LEUCOVORIN
     Indication: RECTOSIGMOID CANCER
     Dosage: DF
  4. OXALIPLATIN (OXALIPLATIN) [Suspect]
     Active Substance: OXALIPLATIN
     Indication: RECTOSIGMOID CANCER
     Dosage: DF

REACTIONS (1)
  - Aortic thrombosis [None]
